FAERS Safety Report 6434924-0 (Version None)
Quarter: 2009Q4

REPORT INFORMATION
  Report Type: 
  Country: None (occurrence: None)
  Receive Date: 20091110
  Receipt Date: 20091029
  Transmission Date: 20100525
  Serious: Yes (Death)
  Sender: FDA-Public Use
  Company Number: US-GENENTECH-293683

PATIENT
  Age: 35 Year
  Sex: Male

DRUGS (2)
  1. ACTIVASE [Suspect]
     Indication: ISCHAEMIC STROKE
     Dosage: UNK
     Route: 042
  2. ACTIVASE [Suspect]
     Indication: BASILAR ARTERY OCCLUSION

REACTIONS (12)
  - APNOEA [None]
  - ARTERY DISSECTION [None]
  - BRAIN DEATH [None]
  - BRAIN HERNIATION [None]
  - BRAIN OEDEMA [None]
  - BRAIN STEM HAEMORRHAGE [None]
  - COMA [None]
  - DRUG INEFFECTIVE [None]
  - HYDROCEPHALUS [None]
  - PRECEREBRAL ARTERY OCCLUSION [None]
  - PULSE ABSENT [None]
  - SUBARACHNOID HAEMORRHAGE [None]
